FAERS Safety Report 17584936 (Version 1)
Quarter: 2020Q1

REPORT INFORMATION
  Report Type: Spontaneous
  Country: US (occurrence: US)
  Receive Date: 20200325
  Receipt Date: 20200325
  Transmission Date: 20200409
  Serious: No
  Sender: FDA-Public Use
  Company Number: None

PATIENT
  Age: 60 Year
  Sex: Male
  Weight: 93.8 kg

DRUGS (3)
  1. CYMBALTA [Suspect]
     Active Substance: DULOXETINE HYDROCHLORIDE
     Indication: ANXIETY
     Route: 048
     Dates: start: 20200306, end: 20200308
  2. CYMBALTA [Suspect]
     Active Substance: DULOXETINE HYDROCHLORIDE
     Indication: AFFECTIVE DISORDER
     Route: 048
     Dates: start: 20200306, end: 20200308
  3. CYMBALTA [Suspect]
     Active Substance: DULOXETINE HYDROCHLORIDE
     Indication: PAIN
     Route: 048
     Dates: start: 20200306, end: 20200308

REACTIONS (8)
  - Constipation [None]
  - Dizziness [None]
  - Loss of consciousness [None]
  - Dry mouth [None]
  - Nausea [None]
  - Feeling abnormal [None]
  - Vomiting [None]
  - Renal replacement therapy [None]

NARRATIVE: CASE EVENT DATE: 20200308
